FAERS Safety Report 14650413 (Version 2)
Quarter: 2018Q4

REPORT INFORMATION
  Report Type: Spontaneous
  Country: GB (occurrence: GB)
  Receive Date: 20180316
  Receipt Date: 20181126
  Transmission Date: 20190204
  Serious: Yes (Other)
  Sender: FDA-Public Use
  Company Number: GB-SA-2018SA070943

PATIENT
  Age: 58 Year
  Sex: Female
  Weight: 91 kg

DRUGS (6)
  1. FEXOFENADINE HYDROCHLORIDE. [Suspect]
     Active Substance: FEXOFENADINE HYDROCHLORIDE
     Dosage: 120 MG,UNK
     Route: 048
     Dates: end: 20180213
  2. CARBOPLATIN. [Concomitant]
     Active Substance: CARBOPLATIN
     Indication: ENDOMETRIAL CANCER STAGE III
     Dosage: UNK
     Dates: start: 201710
  3. PAROXETINE. [Concomitant]
     Active Substance: PAROXETINE
  4. PREDNISOLONE. [Concomitant]
     Active Substance: PREDNISOLONE
  5. OMEPRAZOLE SODIUM [Concomitant]
     Active Substance: OMEPRAZOLE SODIUM
  6. TAXOL [Concomitant]
     Active Substance: PACLITAXEL
     Indication: ENDOMETRIAL CANCER STAGE III
     Dosage: UNK
     Dates: start: 201710

REACTIONS (1)
  - Liver function test abnormal [Recovered/Resolved]

NARRATIVE: CASE EVENT DATE: 20180213
